FAERS Safety Report 8713525 (Version 2)
Quarter: 2013Q1

REPORT INFORMATION
  Report Type: Spontaneous
  Country: GB (occurrence: None)
  Receive Date: 20120724
  Receipt Date: 20121228
  Transmission Date: 20140127
  Serious: Yes (Other)
  Sender: FDA-Public Use
  Company Number: GER/UKI/12/0025085

PATIENT
  Sex: Male

DRUGS (2)
  1. QUETIAPINE FUMARATE [Suspect]
     Indication: PRODUCT USED FOR UNKNOWN INDICATION
     Dates: start: 20120627
  2. LITHIUM CARBONATE [Concomitant]

REACTIONS (5)
  - Bruxism [None]
  - Erectile dysfunction [None]
  - Tardive dyskinesia [None]
  - Sedation [None]
  - Anhedonia [None]
